FAERS Safety Report 25881198 (Version 2)
Quarter: 2025Q4

REPORT INFORMATION
  Report Type: Spontaneous
  Country: US (occurrence: US)
  Receive Date: 20251004
  Receipt Date: 20251008
  Transmission Date: 20260118
  Serious: Yes (Life-Threatening, Hospitalization, Other)
  Sender: IPSEN BIOPHARMACEUTICALS, INC.
  Company Number: US-IPSEN Group, Research and Development-2025-24182

PATIENT
  Age: 73 Year
  Sex: Female
  Weight: 63 kg

DRUGS (3)
  1. ONIVYDE [Suspect]
     Active Substance: IRINOTECAN HYDROCHLORIDE
     Indication: Colorectal cancer metastatic
     Dosage: DAY 1 AND 15 OF 28-DAY CYCLE
     Route: 041
     Dates: start: 20250529, end: 20250904
  2. BEVACIZUMAB [Suspect]
     Active Substance: BEVACIZUMAB
     Indication: Colorectal cancer metastatic
     Dosage: DAYS 1 + 15 OF 28 DAY CYCLE
     Route: 041
     Dates: start: 20250529, end: 20250904
  3. LONSURF [Suspect]
     Active Substance: TIPIRACIL HYDROCHLORIDE\TRIFLURIDINE
     Indication: Colorectal cancer metastatic
     Dosage: DOSE (30-12.28 MG), FREQUENCY (DAYS 1-5 + 15-19 OF 28 DAY CYCLE), STRENGTH (15- 6.14 MG)
     Route: 048
     Dates: start: 20250529, end: 20250904

REACTIONS (6)
  - Radiculopathy [Unknown]
  - Muscular weakness [Unknown]
  - Oedema peripheral [Unknown]
  - Constipation [Unknown]
  - Spinal stenosis [Unknown]
  - Urinary retention [Recovered/Resolved]

NARRATIVE: CASE EVENT DATE: 20250909
